FAERS Safety Report 15271539 (Version 1)
Quarter: 2018Q3

REPORT INFORMATION
  Report Type: Spontaneous
  Country: US (occurrence: US)
  Receive Date: 20180813
  Receipt Date: 20180813
  Transmission Date: 20181010
  Serious: Yes (Other)
  Sender: FDA-Public Use
  Company Number: US-GLENMARK PHARMACEUTICALS-2018GMK036925

PATIENT
  Age: 3 Month
  Sex: Female

DRUGS (1)
  1. MOMETASONE FUROATE. [Suspect]
     Active Substance: MOMETASONE FUROATE
     Indication: SEBORRHOEIC DERMATITIS
     Dosage: UNK
     Route: 061

REACTIONS (2)
  - Cushingoid [Unknown]
  - Hypothalamic pituitary adrenal axis suppression [Recovering/Resolving]
